FAERS Safety Report 4386689-4 (Version None)
Quarter: 2004Q2

REPORT INFORMATION
  Report Type: 
  Country: None (occurrence: None)
  Receive Date: 20040607
  Receipt Date: 20040105
  Transmission Date: 20050107
  Serious: Yes (Other)
  Sender: FDA-Public Use
  Company Number: 355269

PATIENT

DRUGS (4)
  1. ACCUTANE [Suspect]
     Indication: ACNE
     Dosage: ORAL
     Route: 048
     Dates: start: 20030924, end: 20040105
  2. ACCUTANE [Suspect]
     Indication: INFLAMMATION
     Dosage: ORAL
     Route: 048
     Dates: start: 20030924, end: 20040105
  3. MIRCETTE (DESOGESTREL/ETHINYL ESTRADIOL) [Concomitant]
  4. ORTHO EVRA (ETHINYL ESTRADIOL/NORGESTREL) [Concomitant]

REACTIONS (1)
  - ABORTION INDUCED [None]
